FAERS Safety Report 16655985 (Version 4)
Quarter: 2019Q3

REPORT INFORMATION
  Report Type: Report from Study
  Country: GB (occurrence: GB)
  Receive Date: 20190801
  Receipt Date: 20190914
  Transmission Date: 20191004
  Serious: Yes (Hospitalization)
  Sender: FDA-Public Use
  Company Number: GB-ROCHE-2362675

PATIENT
  Age: 12 Year
  Sex: Male
  Weight: 35 kg

DRUGS (6)
  1. PHENYTOIN. [Suspect]
     Active Substance: PHENYTOIN
     Indication: SEIZURE
     Route: 065
  2. CLOBAZAM. [Suspect]
     Active Substance: CLOBAZAM
     Indication: EPILEPSY
     Dosage: 10 MILLIGRAM EVERY NIGHT
     Route: 065
  3. CANNABIDIOL [Interacting]
     Active Substance: CANNABIDIOL
     Indication: SEVERE MYOCLONIC EPILEPSY OF INFANCY
     Route: 048
     Dates: start: 20190508
  4. SODIUM VALPROATE [Concomitant]
     Active Substance: VALPROATE SODIUM
     Indication: EPILEPSY
     Dosage: 600 MILLIGRAM, QD (200MG AM AND 400MG PM)
     Route: 065
  5. DIAZEPAM. [Suspect]
     Active Substance: DIAZEPAM
     Indication: EPILEPSY
     Route: 054
     Dates: start: 20190706, end: 20190706
  6. STIRIPENTOL [Suspect]
     Active Substance: STIRIPENTOL
     Indication: EPILEPSY
     Dosage: 500 MILLIGRAM, BID
     Route: 065

REACTIONS (6)
  - Photophobia [Unknown]
  - Extravasation [Recovering/Resolving]
  - Somnolence [Recovered/Resolved]
  - Drug interaction [Unknown]
  - Seizure [Recovered/Resolved]
  - Hyporesponsive to stimuli [Unknown]

NARRATIVE: CASE EVENT DATE: 201907
